FAERS Safety Report 19997335 (Version 1)
Quarter: 2021Q4

REPORT INFORMATION
  Report Type: Spontaneous
  Country: GB (occurrence: GB)
  Receive Date: 20211026
  Receipt Date: 20211026
  Transmission Date: 20220303
  Serious: Yes (Other)
  Sender: FDA-Public Use
  Company Number: GB-MYLANLABS-2021M1064972

PATIENT
  Age: 38 Year
  Sex: Female

DRUGS (1)
  1. CLOZARIL [Suspect]
     Active Substance: CLOZAPINE
     Indication: Product used for unknown indication
     Dosage: UNK
     Route: 048
     Dates: start: 20160506

REACTIONS (3)
  - Anaemia [Not Recovered/Not Resolved]
  - Neutrophilia [Unknown]
  - Leukocytosis [Unknown]

NARRATIVE: CASE EVENT DATE: 20210920
